FAERS Safety Report 6306157-X (Version None)
Quarter: 2009Q3

REPORT INFORMATION
  Report Type: 
  Country: None (occurrence: None)
  Receive Date: 20090810
  Receipt Date: 20090810
  Transmission Date: 20100115
  Serious: Yes (Hospitalization, Other)
  Sender: FDA-Public Use
  Company Number: None

PATIENT
  Age: 48 Year
  Sex: Male
  Weight: 95.2554 kg

DRUGS (2)
  1. DURAGESIC-50 [Suspect]
     Indication: NECK PAIN
     Dosage: 1 PATCH Q72 HOURS TRANSDERMAL
     Route: 062
     Dates: start: 20090515, end: 20090731
  2. OXYCODONE HCL [Concomitant]

REACTIONS (13)
  - ANALGESIC DRUG LEVEL DECREASED [None]
  - BALANCE DISORDER [None]
  - DIZZINESS [None]
  - DYSPNOEA [None]
  - FATIGUE [None]
  - HYPERHIDROSIS [None]
  - HYPOVOLAEMIA [None]
  - HYPOXIA [None]
  - NIGHT SWEATS [None]
  - PAIN [None]
  - PRODUCT QUALITY ISSUE [None]
  - REBOUND EFFECT [None]
  - WITHDRAWAL SYNDROME [None]
